FAERS Safety Report 7331760-8 (Version None)
Quarter: 2011Q1

REPORT INFORMATION
  Report Type: 
  Country: None (occurrence: None)
  Receive Date: 20110228
  Receipt Date: 20110228
  Transmission Date: 20110831
  Serious: No
  Sender: FDA-Public Use
  Company Number: None

PATIENT
  Sex: Female
  Weight: 58.1 kg

DRUGS (1)
  1. SUPREP BOWEL PREP KIT [Suspect]
     Indication: COLONOSCOPY
     Dosage: 60Z 5PM MOUTH   60Z 10PM MOUTH
     Route: 048
     Dates: start: 20100209

REACTIONS (2)
  - VOMITING [None]
  - NAUSEA [None]
